FAERS Safety Report 7683681-9 (Version None)
Quarter: 2011Q3

REPORT INFORMATION
  Report Type: 
  Country: None (occurrence: None)
  Receive Date: 20110803
  Receipt Date: 20110729
  Transmission Date: 20111222
  Serious: Yes (Hospitalization, Other)
  Sender: FDA-Public Use
  Company Number: 2011028871

PATIENT
  Age: 53 Year
  Sex: Female

DRUGS (21)
  1. HIZENTRA [Suspect]
  2. ZOFRAN /00955301/ (ONDANSETRON) [Concomitant]
  3. LEXAPRO [Concomitant]
  4. FLORINEF [Concomitant]
  5. RESTASIS [Concomitant]
  6. HIZENTRA [Suspect]
  7. MICROGENICS PROBIOTIC B (LACTOBACILLUS ACIDOPHILUS) [Concomitant]
  8. LORATADINE [Concomitant]
  9. HIZENTRA [Suspect]
  10. LOTEMAX (LOTEPREDNIOL ETABONATE) [Concomitant]
  11. ESTRING [Concomitant]
  12. SYNTHROID [Concomitant]
  13. LIDODERM [Concomitant]
  14. CLONAZEPAM [Concomitant]
  15. HIZENTRA [Suspect]
     Indication: IMMUNODEFICIENCY COMMON VARIABLE
     Dosage: SEE IMAGE
     Route: 058
     Dates: start: 20101218
  16. HIZENTRA [Suspect]
  17. VIVELLE-DOT [Concomitant]
  18. TYLENOL W/ CODEINE NO. 3 [Concomitant]
  19. OXYCONTIN [Concomitant]
  20. VICODIN [Concomitant]
  21. VITAMIN D [Concomitant]

REACTIONS (8)
  - CANDIDIASIS [None]
  - WOUND [None]
  - INTERSTITIAL LUNG DISEASE [None]
  - DEVICE RELATED INFECTION [None]
  - COUGH [None]
  - IMPAIRED HEALING [None]
  - ORAL INFECTION [None]
  - SKIN LESION [None]
